FAERS Safety Report 11873285 (Version 3)
Quarter: 2016Q1

REPORT INFORMATION
  Report Type: Spontaneous
  Country: GB (occurrence: GB)
  Receive Date: 20151228
  Receipt Date: 20160128
  Transmission Date: 20160526
  Serious: Yes (Other)
  Sender: FDA-Public Use
  Company Number: PHHY2015GB165565

PATIENT
  Age: 67 Year
  Sex: Female

DRUGS (2)
  1. RAMIPRIL. [Suspect]
     Active Substance: RAMIPRIL
     Indication: HYPERTENSION
     Dosage: 2.5 MG, QD
     Route: 048
  2. CANESTEN HC [Suspect]
     Active Substance: CLOTRIMAZOLE\HYDROCORTISONE
     Indication: CANDIDA INFECTION
     Dosage: 1 DF, BID(APPLY THINLY)
     Route: 061
     Dates: start: 20151105

REACTIONS (4)
  - Drug interaction [Unknown]
  - Anxiety [Unknown]
  - Feeling abnormal [Not Recovered/Not Resolved]
  - Dizziness [Not Recovered/Not Resolved]

NARRATIVE: CASE EVENT DATE: 20151107
